FAERS Safety Report 7991134-3 (Version None)
Quarter: 2011Q4

REPORT INFORMATION
  Report Type: 
  Country: None (occurrence: None)
  Receive Date: 20111219
  Receipt Date: 20111208
  Transmission Date: 20120403
  Serious: Yes (Hospitalization)
  Sender: FDA-Public Use
  Company Number: US-JNJFOC-20111204925

PATIENT
  Sex: Female
  Weight: 63.7 kg

DRUGS (20)
  1. LUXIQ [Concomitant]
  2. FLUOCINONIDE [Concomitant]
  3. CEFZIL [Concomitant]
  4. MUPIROCIN [Concomitant]
  5. BACTROBAN [Concomitant]
     Route: 045
  6. FERROUS SULFATE TAB [Concomitant]
  7. MULTIPLE VITAMIN [Concomitant]
  8. METHOTREXATE [Concomitant]
  9. ALBUTEROL [Concomitant]
     Route: 055
  10. OMEGA 3 FATTY ACID [Concomitant]
  11. REMICADE [Suspect]
     Indication: CROHN'S DISEASE
     Route: 042
     Dates: end: 20111101
  12. MESALAMINE [Concomitant]
     Route: 048
  13. FOLIC ACID [Concomitant]
  14. LIDEX [Concomitant]
  15. CLOBETASOL [Concomitant]
  16. AMITRIPTYLINE HCL [Concomitant]
  17. VITAMIN D [Concomitant]
  18. SINGULAIR [Concomitant]
  19. FLORASTOR [Concomitant]
  20. FLAGYL [Concomitant]

REACTIONS (1)
  - CROHN'S DISEASE [None]
